FAERS Safety Report 7563415-9 (Version None)
Quarter: 2011Q2

REPORT INFORMATION
  Report Type: 
  Country: None (occurrence: None)
  Receive Date: 20110622
  Receipt Date: 20110512
  Transmission Date: 20111010
  Serious: Yes (Life-Threatening)
  Sender: FDA-Public Use
  Company Number: B0718678A

PATIENT
  Age: 71 Year
  Sex: Female
  Weight: 64 kg

DRUGS (6)
  1. ALENDRONIC ACID [Concomitant]
     Indication: OSTEOPOROSIS
     Route: 048
  2. SINGULAIR [Concomitant]
     Indication: ASTHMA
     Dosage: 10MG PER DAY
     Route: 048
  3. LEVOTHYROXINE SODIUM [Concomitant]
     Indication: HYPOTHYROIDISM
     Dosage: 100MCG PER DAY
     Route: 048
  4. SERETIDE [Suspect]
     Indication: ASTHMA
     Route: 055
     Dates: start: 20110421, end: 20110421
  5. ALBUTEROL [Concomitant]
     Indication: ASTHMA
     Route: 055
  6. SIMVASTATIN [Concomitant]
     Dosage: 40MG PER DAY
     Route: 048

REACTIONS (2)
  - WHEEZING [None]
  - OEDEMA MOUTH [None]
